FAERS Safety Report 26199683 (Version 1)
Quarter: 2025Q4

REPORT INFORMATION
  Report Type: Spontaneous
  Country: EU (occurrence: EU)
  Receive Date: 20251225
  Receipt Date: 20251225
  Transmission Date: 20260117
  Serious: Yes (Other)
  Sender: ROCHE
  Company Number: None

PATIENT
  Age: 78 Year
  Sex: Female

DRUGS (3)
  1. TOCILIZUMAB [Suspect]
     Active Substance: TOCILIZUMAB
     Indication: Polymyalgia rheumatica
     Route: 058
     Dates: start: 20251023, end: 20251030
  2. RIMIFON [Suspect]
     Active Substance: ISONIAZID
     Indication: Latent tuberculosis
     Route: 048
     Dates: start: 20250929, end: 20251104
  3. RIMIFON [Suspect]
     Active Substance: ISONIAZID
     Route: 048
     Dates: start: 20251201

REACTIONS (1)
  - Mixed liver injury [Recovering/Resolving]

NARRATIVE: CASE EVENT DATE: 20251029
